FAERS Safety Report 15208150 (Version 2)
Quarter: 2018Q3

REPORT INFORMATION
  Report Type: Spontaneous
  Country: PT (occurrence: PT)
  Receive Date: 20180727
  Receipt Date: 20180817
  Transmission Date: 20181010
  Serious: Yes (Other)
  Sender: FDA-Public Use
  Company Number: PT-TEVA-2018-PT-930555

PATIENT
  Age: 33 Year
  Sex: Female

DRUGS (4)
  1. THIOCOLCHICOSIDE [Concomitant]
     Active Substance: THIOCOLCHICOSIDE
     Indication: TENDONITIS
     Dosage: 4 MILLIGRAM DAILY;
     Route: 030
     Dates: start: 20161130
  2. DICLOFENAC [Suspect]
     Active Substance: DICLOFENAC
     Indication: TENDONITIS
     Dosage: 100 MILLIGRAM DAILY;
     Route: 048
     Dates: start: 20161205, end: 20161205
  3. AIRTAL [Concomitant]
     Active Substance: ACECLOFENAC
     Indication: TENDONITIS
     Dosage: 100 MILLIGRAM DAILY;
     Route: 048
     Dates: start: 20161130
  4. PROFENID [Concomitant]
     Active Substance: KETOPROFEN
     Indication: TENDONITIS
     Dosage: 100 MILLIGRAM DAILY;
     Route: 030
     Dates: start: 20161130

REACTIONS (3)
  - Angioedema [Recovered/Resolved]
  - Cough [Recovered/Resolved]
  - Dyspnoea [Recovered/Resolved]

NARRATIVE: CASE EVENT DATE: 20161205
